FAERS Safety Report 15800500 (Version 1)
Quarter: 2019Q1

REPORT INFORMATION
  Report Type: Other
  Country: ES (occurrence: ES)
  Receive Date: 20190108
  Receipt Date: 20190108
  Transmission Date: 20190417
  Serious: Yes (Hospitalization)
  Sender: FDA-Public Use
  Company Number: ES-CELLTRION INC.-2019ES017597

PATIENT

DRUGS (1)
  1. REMSIMA [Suspect]
     Active Substance: INFLIXIMAB
     Indication: ANKYLOSING SPONDYLITIS
     Dosage: 400 MG/ 8 SEMANAS
     Route: 042
     Dates: start: 20170626, end: 20180528

REACTIONS (1)
  - Lymph nodes scan abnormal [Recovered/Resolved]

NARRATIVE: CASE EVENT DATE: 20180716
